FAERS Safety Report 6170174-3 (Version None)
Quarter: 2009Q2

REPORT INFORMATION
  Report Type: 
  Country: None (occurrence: None)
  Receive Date: 20090427
  Receipt Date: 20090427
  Transmission Date: 20091009
  Serious: Yes (Hospitalization, Other)
  Sender: FDA-Public Use
  Company Number: None

PATIENT
  Sex: Male
  Weight: 74.3899 kg

DRUGS (4)
  1. CARDURA [Suspect]
     Indication: HYPERTENSION
     Dosage: 2 OR 4 MG. DAILY ORAL  70 DAYS
     Route: 048
     Dates: start: 20080401
  2. CARDURA [Suspect]
     Indication: HYPERTENSION
     Dosage: 2 OR 4 MG. DAILY ORAL  70 DAYS
     Route: 048
     Dates: start: 20080501
  3. CARDURA [Suspect]
     Indication: HYPERTENSION
     Dosage: 2 OR 4 MG. DAILY ORAL  70 DAYS
     Route: 048
     Dates: start: 20080601
  4. TOPROL-XL [Suspect]

REACTIONS (9)
  - ASTHENIA [None]
  - ATRIAL FIBRILLATION [None]
  - BLOOD PRESSURE INCREASED [None]
  - CONSTIPATION [None]
  - FATIGUE [None]
  - HEADACHE [None]
  - HEART RATE INCREASED [None]
  - HEART RATE IRREGULAR [None]
  - PALPITATIONS [None]
